FAERS Safety Report 4798227-2 (Version None)
Quarter: 2005Q4

REPORT INFORMATION
  Report Type: 
  Country: None (occurrence: None)
  Receive Date: 20051011
  Receipt Date: 20050928
  Transmission Date: 20060501
  Serious: Yes (Hospitalization, Other)
  Sender: FDA-Public Use
  Company Number: 2005135737

PATIENT
  Age: 58 Year
  Sex: Female
  Weight: 81.6475 kg

DRUGS (1)
  1. ZOLOFT [Suspect]
     Indication: EMOTIONAL DISORDER
     Dosage: 300 MG (1 IN 1 D)

REACTIONS (8)
  - CLOSTRIDIAL INFECTION [None]
  - DEVICE FAILURE [None]
  - INCISION SITE COMPLICATION [None]
  - MENINGITIS [None]
  - PAIN [None]
  - PATHOGEN RESISTANCE [None]
  - POST PROCEDURAL COMPLICATION [None]
  - POSTOPERATIVE INFECTION [None]
